FAERS Safety Report 14151580 (Version 1)
Quarter: 2017Q4

REPORT INFORMATION
  Report Type: Spontaneous
  Country: AU (occurrence: AU)
  Receive Date: 20171102
  Receipt Date: 20171102
  Transmission Date: 20180321
  Serious: Yes (Hospitalization)
  Sender: FDA-Public Use
  Company Number: AU-BAXTER-2017BAX036619

PATIENT
  Sex: Female

DRUGS (3)
  1. CITRATE BUFFER [Suspect]
     Active Substance: SODIUM CITRATE
     Indication: MEDICATION DILUTION
     Dosage: COMPOUNDED WITH BAXTER SODIUM CHLORIDE 0.9% AND FLUBICLOX, BAXTER NOT APPROVED PRODUCT
     Route: 065
  2. BAXTER 0.9% SODIUM CHLORIDE 9G_L INJECTION BP BAG AHB1324 [Suspect]
     Active Substance: SODIUM CHLORIDE
     Indication: MEDICATION DILUTION
     Dosage: COMPOUNDED WITH FLUBICLOX AND CITRATE BUFFER
     Route: 065
  3. FLUCLOXACILLIN (FLUBICLOX) [Suspect]
     Active Substance: FLUCLOXACILLIN
     Indication: PRODUCT USED FOR UNKNOWN INDICATION
     Dosage: COMPOUNDED WITH BAXTER SODIUM CHLORIDE 0.9% AND CITRATE BUFFER
     Route: 065

REACTIONS (1)
  - Rash [Unknown]
